FAERS Safety Report 6645145-0 (Version None)
Quarter: 2010Q1

REPORT INFORMATION
  Report Type: 
  Country: None (occurrence: None)
  Receive Date: 20100308
  Receipt Date: 20100223
  Transmission Date: 20100710
  Serious: No
  Sender: FDA-Public Use
  Company Number: 2010-00292

PATIENT
  Age: 17 Year
  Sex: Male
  Weight: 113.3993 kg

DRUGS (1)
  1. ZICAM EXTREME CONGESTION NASAL GEL [Suspect]
     Dosage: QD - ONE DOSE
     Dates: start: 20100222, end: 20100222

REACTIONS (1)
  - ANOSMIA [None]
